FAERS Safety Report 18837495 (Version 1)
Quarter: 2021Q1

REPORT INFORMATION
  Report Type: Spontaneous
  Country: US (occurrence: US)
  Receive Date: 20210203
  Receipt Date: 20210203
  Transmission Date: 20210419
  Serious: No
  Sender: FDA-Public Use
  Company Number: US-ALLERGAN-2040339US

PATIENT
  Age: 1 Year

DRUGS (1)
  1. BOTOX COSMETIC [Suspect]
     Active Substance: ONABOTULINUMTOXINA
     Indication: MATERNAL EXPOSURE DURING BREAST FEEDING
     Dosage: UNK UNK, SINGLE

REACTIONS (1)
  - Maternal exposure during breast feeding [Unknown]
